FAERS Safety Report 19010600 (Version 1)
Quarter: 2021Q1

REPORT INFORMATION
  Report Type: Spontaneous
  Country: AU (occurrence: AU)
  Receive Date: 20210315
  Receipt Date: 20210315
  Transmission Date: 20210420
  Serious: Yes (Death, Hospitalization, Disabling, Other)
  Sender: FDA-Public Use
  Company Number: AU-SA-2021SA017160

PATIENT
  Age: 72 Year
  Sex: Female
  Weight: 68 kg

DRUGS (1)
  1. MYOZYME [Suspect]
     Active Substance: ALGLUCOSIDASE ALFA
     Indication: GLYCOGEN STORAGE DISEASE TYPE II
     Dosage: 1600 MG, QOW
     Route: 042

REACTIONS (13)
  - Pulmonary oedema [Fatal]
  - Cardiac failure [Fatal]
  - Pulmonary embolism [Fatal]
  - Fluid overload [Fatal]
  - Poor venous access [Unknown]
  - Aspiration [Fatal]
  - Chronic respiratory failure [Fatal]
  - Hypokalaemia [Unknown]
  - General physical health deterioration [Fatal]
  - Atrial fibrillation [Unknown]
  - Muscular weakness [Unknown]
  - Musculoskeletal disorder [Unknown]
  - Fall [Unknown]

NARRATIVE: CASE EVENT DATE: 202012
